FAERS Safety Report 12974216 (Version 1)
Quarter: 2016Q4

REPORT INFORMATION
  Report Type: Spontaneous
  Country: DE (occurrence: DE)
  Receive Date: 20161125
  Receipt Date: 20161125
  Transmission Date: 20170207
  Serious: Yes (Death)
  Sender: FDA-Public Use
  Company Number: DE-BAXTER-2016BAX058761

PATIENT
  Age: 58 Year
  Sex: Male
  Weight: 107 kg

DRUGS (8)
  1. UROMITEXAN 400 MG [Suspect]
     Active Substance: MESNA
     Indication: SOFT TISSUE SARCOMA
     Route: 042
     Dates: start: 20161021, end: 20161022
  2. ETOPOSIDE. [Suspect]
     Active Substance: ETOPOSIDE
     Indication: RECURRENT CANCER
  3. HOLOXAN [Suspect]
     Active Substance: IFOSFAMIDE
     Indication: SOFT TISSUE SARCOMA
     Route: 042
     Dates: start: 20161021, end: 20161021
  4. UROMITEXAN 400 MG [Suspect]
     Active Substance: MESNA
     Indication: RECURRENT CANCER
  5. ETOPOSIDE. [Suspect]
     Active Substance: ETOPOSIDE
     Indication: SOFT TISSUE SARCOMA
     Route: 042
     Dates: start: 20161021, end: 20161021
  6. HOLOXAN [Suspect]
     Active Substance: IFOSFAMIDE
     Indication: RECURRENT CANCER
  7. CARBOPLATIN. [Suspect]
     Active Substance: CARBOPLATIN
     Indication: SOFT TISSUE SARCOMA
     Route: 042
     Dates: start: 20161021, end: 20161021
  8. CARBOPLATIN. [Suspect]
     Active Substance: CARBOPLATIN
     Indication: RECURRENT CANCER

REACTIONS (3)
  - Encephalopathy [Fatal]
  - Acute kidney injury [Fatal]
  - Coma [Fatal]

NARRATIVE: CASE EVENT DATE: 20161022
